FAERS Safety Report 20414984 (Version 1)
Quarter: 2022Q1

REPORT INFORMATION
  Report Type: Spontaneous
  Country: IN (occurrence: IN)
  Receive Date: 20220202
  Receipt Date: 20220202
  Transmission Date: 20220423
  Serious: Yes (Other)
  Sender: FDA-Public Use
  Company Number: IN-SUN PHARMACEUTICAL INDUSTRIES LTD-2019R1-229524

PATIENT
  Age: 54 Year
  Sex: Male

DRUGS (7)
  1. PACLITAXEL [Interacting]
     Active Substance: PACLITAXEL
     Indication: Lung squamous cell carcinoma stage IV
     Dosage: UNK  (175 MG/M2)
     Route: 065
  2. PACLITAXEL [Interacting]
     Active Substance: PACLITAXEL
     Indication: Metastasis
  3. ONDANSETRON [Suspect]
     Active Substance: ONDANSETRON
     Indication: Premedication
     Dosage: UNK ( 8 MG)
     Route: 042
  4. RANITIDINE [Suspect]
     Active Substance: RANITIDINE
     Indication: Premedication
     Dosage: UNK (50 MG)
     Route: 042
  5. CARBOPLATIN [Concomitant]
     Active Substance: CARBOPLATIN
     Indication: Lung squamous cell carcinoma stage IV
     Dosage: UNK (450MG)
     Route: 065
  6. CARBOPLATIN [Concomitant]
     Active Substance: CARBOPLATIN
     Indication: Metastasis
  7. DEXAMETHASONE [Concomitant]
     Active Substance: DEXAMETHASONE
     Indication: Premedication
     Dosage: UNK (8 MG)
     Route: 042

REACTIONS (2)
  - Cardiogenic shock [Recovered/Resolved]
  - Drug interaction [Unknown]
